FAERS Safety Report 4339982-5 (Version None)
Quarter: 2004Q2

REPORT INFORMATION
  Report Type: 
  Country: None (occurrence: None)
  Receive Date: 20040415
  Receipt Date: 20040415
  Transmission Date: 20050107
  Serious: Yes (Life-Threatening)
  Sender: FDA-Public Use
  Company Number: None

PATIENT
  Age: 45 Year
  Sex: Male
  Weight: 41.232 kg

DRUGS (3)
  1. FLUOROURACIL [Suspect]
     Indication: RECTAL CANCER
     Dosage: 455 MG / 24 HOUR CONTINUOUS IV INFUSION
     Route: 042
     Dates: start: 20040324
  2. CELEBREX [Suspect]
     Indication: RECTAL CANCER
     Dosage: 800 MG/DAY - PO
     Route: 048
     Dates: start: 20040319, end: 20040413
  3. MIRACLE MOUTHWASH [Concomitant]

REACTIONS (1)
  - HAEMATEMESIS [None]
